FAERS Safety Report 5530781-5 (Version None)
Quarter: 2007Q4

REPORT INFORMATION
  Report Type: 
  Country: None (occurrence: None)
  Receive Date: 20071130
  Receipt Date: 20071123
  Transmission Date: 20080405
  Serious: Yes (Other)
  Sender: FDA-Public Use
  Company Number: US-BAYER-200714857NA

PATIENT

DRUGS (2)
  1. LEUKINE [Suspect]
     Indication: DRUG USE FOR UNKNOWN INDICATION
  2. CORTISONE ACETATE TAB [Concomitant]
     Indication: EXOSTOSIS

REACTIONS (3)
  - ADVERSE DRUG REACTION [None]
  - ANKYLOSING SPONDYLITIS [None]
  - EXOSTOSIS [None]
